FAERS Safety Report 14256646 (Version 29)
Quarter: 2021Q1

REPORT INFORMATION
  Report Type: Spontaneous
  Country: ES (occurrence: ES)
  Receive Date: 20171206
  Receipt Date: 20210120
  Transmission Date: 20210419
  Serious: Yes (Hospitalization, Other)
  Sender: FDA-Public Use
  Company Number: ES-PFIZER INC-2017521276

PATIENT
  Age: 87 Year
  Sex: Male
  Weight: 87 kg

DRUGS (42)
  1. BILAXTEN [Concomitant]
     Active Substance: BILASTINE
     Dosage: 40 MG, 1X/DAY
     Route: 048
     Dates: start: 20170726, end: 20170726
  2. ZYLORIC [Concomitant]
     Active Substance: ALLOPURINOL
     Dosage: 100 MG, 1X/DAY
     Route: 065
  3. FLUCONAZOLE. [Suspect]
     Active Substance: FLUCONAZOLE
     Dosage: 200 MG, 1XDAY (EACH 24H, DOSAGE FORM: SOLUTION, ON ALLOPURINOL FOR 6 YEARS)
     Route: 042
     Dates: start: 20170810
  4. NEOTIGASON [Suspect]
     Active Substance: ACITRETIN
     Dosage: 50 MG, 1X/DAY
     Route: 065
     Dates: start: 20170728, end: 20170728
  5. STELARA [Suspect]
     Active Substance: USTEKINUMAB
     Indication: ERYTHRODERMIC PSORIASIS
  6. SIMVASTATIN. [Concomitant]
     Active Substance: SIMVASTATIN
     Dosage: 20 MG, 1X/DAY (24 HOURS)
     Route: 065
  7. AZITHROMYCIN ANHYDROUS. [Concomitant]
     Active Substance: AZITHROMYCIN ANHYDROUS
     Dosage: UNK
     Route: 065
     Dates: start: 20170812, end: 20170812
  8. ACITRETIN. [Concomitant]
     Active Substance: ACITRETIN
     Dosage: 25 MG, 1X/DAY
     Route: 065
     Dates: start: 20170728
  9. ACICLOVIR [Suspect]
     Active Substance: ACYCLOVIR
     Indication: ERYTHRODERMIC PSORIASIS
     Dosage: 400 MG, 3XDAY (EACH 8H)
     Route: 042
     Dates: start: 20170810
  10. ALLOPURINOL. [Suspect]
     Active Substance: ALLOPURINOL
     Indication: HYPERURICAEMIA
     Dosage: DOSAGE FORM: UNSPECIFIED, ON ALLOPURINOL FOR 6 YEARS
     Route: 065
     Dates: start: 20110101
  11. NEOTIGASON [Suspect]
     Active Substance: ACITRETIN
     Indication: ERYTHRODERMIC PSORIASIS
     Dosage: 25 MG, 1XDAY
     Route: 065
     Dates: start: 20170728, end: 20170728
  12. BETAMETHASONE W/CALCIPOTRIOL [Concomitant]
     Active Substance: BETAMETHASONE DIPROPIONATE\CALCIPOTRIENE HYDRATE
     Dosage: 1 DF, 2X/DAY (DOSAGE FORM: FOAM, 1 DOSE. ENSTILAR CUTANEOUS FOAM EACH 12H
     Route: 065
     Dates: start: 20170401
  13. DIPROGENTA [Concomitant]
     Active Substance: BETAMETHASONE DIPROPIONATE\GENTAMICIN SULFATE
     Dosage: 1 DF, 2X/DAY
     Route: 061
  14. DIPROGENTA [Concomitant]
     Active Substance: BETAMETHASONE DIPROPIONATE\GENTAMICIN SULFATE
     Dosage: 1 DF, 2X/DAY  (EVERY 12 HOURS)
     Route: 061
  15. ENALAPRIL [Concomitant]
     Active Substance: ENALAPRIL
     Dosage: 5 MG, 1X/DAY
     Route: 065
  16. ALDACTONE [Concomitant]
     Active Substance: SPIRONOLACTONE
     Dosage: 25 MG, 1X/DAY
     Route: 065
     Dates: end: 20170802
  17. STELARA [Suspect]
     Active Substance: USTEKINUMAB
     Indication: PSORIASIS
     Dosage: 45 MG, DAILY
     Route: 058
     Dates: start: 20170803, end: 20170803
  18. LISALGIL [Suspect]
     Active Substance: METAMIZOLE SODIUM
     Dosage: 1 DF, 3X/DAY (EVERY 8 HOURS)
     Route: 042
     Dates: start: 201708
  19. OMNIC OCAS [Concomitant]
     Active Substance: TAMSULOSIN HYDROCHLORIDE
     Dosage: 1 DF, 1X/DAY (24 HOURS)
     Route: 065
  20. MONOLITUM [Concomitant]
     Active Substance: LANSOPRAZOLE
     Dosage: 30 MG, 1X/DAY (EACH 24H)
     Route: 065
     Dates: start: 20170401
  21. BRETARIS GENUAIR [Concomitant]
     Active Substance: ACLIDINIUM BROMIDE
     Dosage: UNK, 2X/DAY (EVERY 12 HOURS)
     Route: 055
  22. ACICLOVIR [Suspect]
     Active Substance: ACYCLOVIR
     Dosage: 1200 MG, 1X/DAY
     Route: 042
     Dates: start: 20170810
  23. ACICLOVIR [Suspect]
     Active Substance: ACYCLOVIR
     Dosage: 45 MG, 1X/DAY
     Route: 058
     Dates: start: 20170810
  24. JUNIPER OIL [Concomitant]
     Active Substance: HERBALS\JUNIPERUS COMMUNIS WHOLE
     Dosage: 1 UNK, 1X/DAY(BATHROOMS WITH JUNIPER OIL QD FOR 20 MINUTES, 1X/DAY)
     Route: 065
  25. LORATADINE. [Concomitant]
     Active Substance: LORATADINE
     Dosage: 10 MG, 1X/DAY
     Route: 048
     Dates: start: 20170726
  26. LORATADINE. [Concomitant]
     Active Substance: LORATADINE
     Dosage: 30 MG, 1X/DAY
     Route: 048
     Dates: start: 20170726
  27. BILAXTEN [Concomitant]
     Active Substance: BILASTINE
     Dosage: 20 MG, 1X/DAY
     Route: 048
     Dates: start: 20170726, end: 20170726
  28. DACORTIN [Concomitant]
     Active Substance: PREDNISONE
     Dosage: 5 MG, 1X/DAY
     Dates: start: 20170801, end: 20170801
  29. SEGURIL [Concomitant]
     Active Substance: FUROSEMIDE
     Dosage: 60 MG, 1X/DAY
     Route: 065
     Dates: start: 20170802, end: 20170802
  30. NOLOTIL [METAMIZOLE MAGNESIUM] [Suspect]
     Active Substance: METAMIZOLE MAGNESIUM
     Dosage: UNK, 1X/DAY
     Route: 042
     Dates: start: 20170801
  31. BRETARIS GENUAIR [Concomitant]
     Active Substance: ACLIDINIUM BROMIDE
     Dosage: 1 DF, 1X/DAY (1 INHALATION, 1X/DAY)
     Route: 055
  32. DIPROGENTA [Concomitant]
     Active Substance: BETAMETHASONE DIPROPIONATE\GENTAMICIN SULFATE
     Dosage: 1 DF, 1X/DAY
     Route: 061
  33. CEFTRIAXONE. [Suspect]
     Active Substance: CEFTRIAXONE
     Dosage: 500 MG, 1X/DAY
     Route: 030
     Dates: start: 20170801, end: 20170812
  34. NOLOTIL [METAMIZOLE MAGNESIUM] [Suspect]
     Active Substance: METAMIZOLE MAGNESIUM
     Dosage: UNK, 1X/DAY (DOSAGE FORM: UNSPECIFIED)
     Route: 042
     Dates: start: 20170801
  35. AUXINA A+E [Concomitant]
     Active Substance: RETINOL\TOCOPHEROL
     Dosage: 1 DF, 1X/DAY
     Route: 048
     Dates: start: 20170401, end: 20170726
  36. ACICLOVIR [Suspect]
     Active Substance: ACYCLOVIR
     Dosage: 45 MG, 1X/DAY
     Route: 042
     Dates: start: 20170810
  37. LISALGIL [Suspect]
     Active Substance: METAMIZOLE SODIUM
     Dosage: 1 DF, 1X/DAY
     Route: 042
     Dates: start: 20170801
  38. PARACETAMOL [Concomitant]
     Active Substance: ACETAMINOPHEN
     Dosage: 650 MG, 2X/DAY (EACH 12H)
     Route: 065
  39. EUCERIN [Concomitant]
     Active Substance: ENSULIZOLE\EUCERIN\OCTINOXATE\OCTISALATE\TITANIUM DIOXIDE\ZINC OXIDE
     Dosage: UNK UNK, 2X/DAY
     Route: 065
  40. DIPROGENTA [Concomitant]
     Active Substance: BETAMETHASONE DIPROPIONATE\GENTAMICIN SULFATE
     Dosage: 1 DF, 2X/DAY
     Route: 061
  41. SALMETEROL [Concomitant]
     Active Substance: SALMETEROL
     Dosage: 1 DF, 2X/DAY (1 INHALATION, 2X/DAY (12 HOURS)
     Route: 055
  42. SPIRONOLACTONE. [Concomitant]
     Active Substance: SPIRONOLACTONE
     Dosage: 25 MG, 1X/DAY
     Route: 065
     Dates: start: 20170802

REACTIONS (5)
  - Toxic epidermal necrolysis [Recovered/Resolved]
  - Off label use [Unknown]
  - Fungal infection [Recovering/Resolving]
  - Oral candidiasis [Recovering/Resolving]
  - Product use issue [Unknown]

NARRATIVE: CASE EVENT DATE: 2017
